FAERS Safety Report 23136070 (Version 2)
Quarter: 2023Q4

REPORT INFORMATION
  Report Type: Spontaneous
  Country: US (occurrence: US)
  Receive Date: 20231102
  Receipt Date: 20231210
  Transmission Date: 20240109
  Serious: No
  Sender: FDA-Public Use
  Company Number: US-JNJFOC-20231048424

PATIENT
  Age: 59 Year
  Sex: Male

DRUGS (3)
  1. TREMFYA [Suspect]
     Active Substance: GUSELKUMAB
     Indication: Psoriasis
     Route: 065
  2. LOSARTAN [Concomitant]
     Active Substance: LOSARTAN
  3. ALLOPURINOL [Concomitant]
     Active Substance: ALLOPURINOL

REACTIONS (4)
  - Product dose omission issue [Unknown]
  - Accidental exposure to product [Unknown]
  - Injection site haemorrhage [Unknown]
  - Device issue [Unknown]

NARRATIVE: CASE EVENT DATE: 20231018
